FAERS Safety Report 15157962 (Version 1)
Quarter: 2018Q3

REPORT INFORMATION
  Report Type: Spontaneous
  Country: US (occurrence: US)
  Receive Date: 20180718
  Receipt Date: 20180718
  Transmission Date: 20181010
  Serious: No
  Sender: FDA-Public Use
  Company Number: US-BEH-2018092792

PATIENT
  Sex: Female
  Weight: 52.15 kg

DRUGS (30)
  1. SUPER B COMPLEX                    /01995301/ [Concomitant]
     Active Substance: CYANOCOBALAMIN\DEXPANTHENOL\NIACINAMIDE\PYRIDOXINE HYDROCHLORIDE\RIBOFLAVIN 5^-PHOSPHATE SODIUM\THIAMINE HYDROCHLORIDE\VITAMIN B COMPLEX
  2. HIZENTRA [Suspect]
     Active Substance: HUMAN IMMUNOGLOBULIN G
     Indication: IMMUNODEFICIENCY COMMON VARIABLE
     Dosage: 8 G, QW
     Route: 058
     Dates: start: 20161207
  3. NIACIN. [Concomitant]
     Active Substance: NIACIN
  4. CREON [Concomitant]
     Active Substance: PANCRELIPASE AMYLASE\PANCRELIPASE LIPASE\PANCRELIPASE PROTEASE
  5. CARVEDILOL. [Concomitant]
     Active Substance: CARVEDILOL
  6. MAGNESIUM [Concomitant]
     Active Substance: MAGNESIUM
  7. EZETIMIBE. [Concomitant]
     Active Substance: EZETIMIBE
  8. COD LIVER OIL [Concomitant]
     Active Substance: COD LIVER OIL
  9. CENTRUM SILVER                     /02363801/ [Concomitant]
     Active Substance: MINERALS\VITAMINS
  10. METFORMIN [Concomitant]
     Active Substance: METFORMIN HYDROCHLORIDE
  11. GABAPENTIN. [Concomitant]
     Active Substance: GABAPENTIN
  12. BUPROPION. [Concomitant]
     Active Substance: BUPROPION
  13. ALPRAZOLAM. [Concomitant]
     Active Substance: ALPRAZOLAM
  14. COENZYME Q10 [Concomitant]
     Active Substance: UBIDECARENONE
  15. VITAMIN D2 [Concomitant]
     Active Substance: ERGOCALCIFEROL
  16. PROMETHAZINE [Concomitant]
     Active Substance: PROMETHAZINE\PROMETHAZINE HYDROCHLORIDE
  17. BUDESONIDE. [Concomitant]
     Active Substance: BUDESONIDE
  18. LMX                                /00033401/ [Concomitant]
  19. GLUCOSAMINE CHONDROITIN            /01430901/ [Concomitant]
  20. LISINOPRIL. [Concomitant]
     Active Substance: LISINOPRIL
  21. VITAMIN C [Concomitant]
     Active Substance: ASCORBIC ACID
  22. ACETAMINOPHEN. [Concomitant]
     Active Substance: ACETAMINOPHEN
  23. EPINEPHRINE. [Concomitant]
     Active Substance: EPINEPHRINE
  24. AZELASTINE. [Concomitant]
     Active Substance: AZELASTINE HYDROCHLORIDE
  25. CURCUMIN [Concomitant]
     Active Substance: CURCUMIN
  26. MUCINEX SINUS MAX DAY NIGHT MAXIMUM STRENGHT [Concomitant]
  27. DIPHENHYDRAMINE. [Concomitant]
     Active Substance: DIPHENHYDRAMINE
  28. PSYLLIUM                           /01328801/ [Concomitant]
     Active Substance: PLANTAGO SEED
  29. VITAMIN B1 [Concomitant]
     Active Substance: THIAMINE HYDROCHLORIDE
  30. IMMUNE GLOBULIN NOS [Concomitant]
     Active Substance: IMMUNE GLOBULIN NOS

REACTIONS (2)
  - Arthralgia [Unknown]
  - Pain in extremity [Unknown]
